FAERS Safety Report 13720874 (Version 1)
Quarter: 2017Q3

REPORT INFORMATION
  Report Type: Spontaneous
  Country: US (occurrence: US)
  Receive Date: 20170705
  Receipt Date: 20170705
  Transmission Date: 20171127
  Serious: Yes (Life-Threatening, Hospitalization)
  Sender: FDA-Public Use
  Company Number: None

PATIENT
  Age: 48 Year
  Sex: Female
  Weight: 100.3 kg

DRUGS (1)
  1. BYDUREON [Suspect]
     Active Substance: EXENATIDE
     Indication: DIABETES MELLITUS INADEQUATE CONTROL
     Dosage: ?          OTHER FREQUENCY:ONCE WEEKLY;?
     Route: 058

REACTIONS (2)
  - Therapy cessation [None]
  - Thrombocytopenia [None]

NARRATIVE: CASE EVENT DATE: 20170303
